FAERS Safety Report 8111195-0 (Version None)
Quarter: 2012Q1

REPORT INFORMATION
  Report Type: 
  Country: None (occurrence: None)
  Receive Date: 20120203
  Receipt Date: 20110614
  Transmission Date: 20120608
  Serious: No
  Sender: FDA-Public Use
  Company Number: US-GLAXOSMITHKLINE-A0931488A

PATIENT
  Age: 45 Year
  Sex: Male

DRUGS (5)
  1. LAMICTAL [Suspect]
     Indication: MIGRAINE
     Dosage: 50MG PER DAY
     Route: 048
     Dates: start: 20110607
  2. ZANAFLEX [Concomitant]
  3. PAXIL [Suspect]
     Indication: PANIC DISORDER
     Dosage: 10MG PER DAY
     Route: 048
     Dates: start: 20110401
  4. TOPAMAX [Concomitant]
  5. LORTAB [Concomitant]

REACTIONS (1)
  - PARAESTHESIA [None]
